FAERS Safety Report 6704008-2 (Version None)
Quarter: 2010Q2

REPORT INFORMATION
  Report Type: 
  Country: None (occurrence: None)
  Receive Date: 20100428
  Receipt Date: 20100414
  Transmission Date: 20101027
  Serious: Yes (Other)
  Sender: FDA-Public Use
  Company Number: 2010-0673

PATIENT
  Age: 50 Year
  Sex: Female
  Weight: 82 kg

DRUGS (4)
  1. SOMATULINE LP 30MG (SOMATULINE SR) (LANREOTIDE) (LANREOTIDE ACETATE) [Suspect]
     Indication: ACROMEGALY
     Dosage: 30MG ONCE EVERY 14 DAYS (30 MG, 1 IN 14 D), INTRAMUSCULAR
     Route: 030
     Dates: start: 19990909
  2. LEVOTHYROXINE SODIUM [Concomitant]
  3. HYDROCORTONE [Concomitant]
  4. SOMAVERT [Concomitant]

REACTIONS (3)
  - CONTUSION [None]
  - INJECTION SITE PAIN [None]
  - NEEDLE ISSUE [None]
